FAERS Safety Report 12530069 (Version 1)
Quarter: 2016Q3

REPORT INFORMATION
  Report Type: Spontaneous
  Country: US (occurrence: US)
  Receive Date: 20160706
  Receipt Date: 20160706
  Transmission Date: 20161109
  Serious: Yes (Death)
  Sender: FDA-Public Use
  Company Number: US-CIPLA LTD.-2011US00218

PATIENT

DRUGS (3)
  1. THALIDOMIDE [Suspect]
     Active Substance: THALIDOMIDE
     Indication: GLIOMA
     Dosage: 100MG, QD FOR FIRST WEEK
     Route: 065
  2. THALIDOMIDE [Suspect]
     Active Substance: THALIDOMIDE
     Dosage: 400 MG, QD
     Route: 065
  3. IRINOTECAN [Suspect]
     Active Substance: IRINOTECAN
     Indication: GLIOMA
     Dosage: 125 MG/M2, WEEKLY FOR 4 WEEKS, FOLLOWED BY 2 WEEKS REST PERIOD
     Route: 042

REACTIONS (1)
  - Urosepsis [Fatal]
